FAERS Safety Report 5289033-3 (Version None)
Quarter: 2007Q2

REPORT INFORMATION
  Report Type: 
  Country: None (occurrence: None)
  Receive Date: 20070405
  Receipt Date: 20070327
  Transmission Date: 20071010
  Serious: Yes (Other)
  Sender: FDA-Public Use
  Company Number: DE-PFIZER INC-2007024867

PATIENT
  Age: 44 Year
  Sex: Female

DRUGS (1)
  1. MEDROXYPROGESTERONE ACETATE [Suspect]
     Indication: CONTRACEPTION
     Dosage: FREQ:LAST INJECTION
     Route: 030
     Dates: start: 20050101, end: 20050101

REACTIONS (1)
  - INJECTION SITE ABSCESS [None]
